FAERS Safety Report 12141242 (Version 1)
Quarter: 2016Q1

REPORT INFORMATION
  Report Type: Spontaneous
  Country: GB (occurrence: GB)
  Receive Date: 20160303
  Receipt Date: 20160303
  Transmission Date: 20160526
  Serious: Yes (Other)
  Sender: FDA-Public Use
  Company Number: GB-PFIZER INC-2016121384

PATIENT
  Age: 82 Year
  Sex: Male
  Weight: 79.37 kg

DRUGS (4)
  1. LOSEC [Concomitant]
     Active Substance: OMEPRAZOLE
     Dosage: UNK
     Dates: start: 20000605, end: 20151228
  2. SIMVASTATIN. [Concomitant]
     Active Substance: SIMVASTATIN
     Dosage: UNK
     Dates: start: 20000605, end: 20151228
  3. PREGABALIN. [Suspect]
     Active Substance: PREGABALIN
     Indication: POSTOPERATIVE CARE
     Dosage: 150 MG, 1X/DAY
     Route: 048
     Dates: start: 20151016, end: 20151022
  4. TOPIRAMATE. [Suspect]
     Active Substance: TOPIRAMATE
     Indication: HEADACHE
     Dosage: 50 MG, 1X/DAY
     Route: 048
     Dates: start: 20140119, end: 20151223

REACTIONS (4)
  - Swollen tongue [Not Recovered/Not Resolved]
  - Lip swelling [Not Recovered/Not Resolved]
  - Dysgeusia [Not Recovered/Not Resolved]
  - Product use issue [Unknown]

NARRATIVE: CASE EVENT DATE: 20151016
